FAERS Safety Report 19977914 (Version 1)
Quarter: 2021Q4

REPORT INFORMATION
  Report Type: Spontaneous
  Country: US (occurrence: US)
  Receive Date: 20211019
  Receipt Date: 20211019
  Transmission Date: 20220304
  Serious: No
  Sender: FDA-Public Use
  Company Number: None

PATIENT
  Age: 74 Year
  Sex: Male

DRUGS (1)
  1. CAPECITABINE [Suspect]
     Active Substance: CAPECITABINE
     Indication: Small intestine carcinoma
     Route: 048
     Dates: start: 202103

REACTIONS (3)
  - Diarrhoea [None]
  - Vomiting [None]
  - Hernia pain [None]

NARRATIVE: CASE EVENT DATE: 20211013
